FAERS Safety Report 9946822 (Version 1)
Quarter: 2014Q1

REPORT INFORMATION
  Report Type: Report from Study
  Country: US (occurrence: US)
  Receive Date: 20140303
  Receipt Date: 20140303
  Transmission Date: 20141002
  Serious: No
  Sender: FDA-Public Use
  Company Number: US-ABBVIE-13P-163-1063767-00

PATIENT
  Age: 40 Year
  Sex: Female
  Weight: 108.96 kg

DRUGS (8)
  1. HUMIRA [Suspect]
     Indication: PULMONARY SARCOIDOSIS
     Dates: start: 20130228
  2. HUMIRA [Suspect]
     Indication: CROHN^S DISEASE
  3. METHOTREXATE [Concomitant]
     Indication: PULMONARY SARCOIDOSIS
  4. FOLIC ACID [Concomitant]
     Indication: VITAMIN SUPPLEMENTATION
  5. LOTREL [Concomitant]
     Indication: HYPERTENSION
  6. PREDNISONE [Concomitant]
     Indication: PULMONARY SARCOIDOSIS
  7. PRESTIQ [Concomitant]
     Indication: ANXIETY
  8. VITAMIN D [Concomitant]
     Indication: HYPOVITAMINOSIS

REACTIONS (6)
  - Chest discomfort [Recovered/Resolved]
  - Heart rate increased [Recovered/Resolved]
  - Oedema peripheral [Recovered/Resolved]
  - Eye haemorrhage [Not Recovered/Not Resolved]
  - Abnormal sensation in eye [Not Recovered/Not Resolved]
  - Off label use [Not Recovered/Not Resolved]
